FAERS Safety Report 8151514-2 (Version None)
Quarter: 2012Q1

REPORT INFORMATION
  Report Type: 
  Country: None (occurrence: None)
  Receive Date: 20120220
  Receipt Date: 20120208
  Transmission Date: 20120608
  Serious: Yes (Hospitalization)
  Sender: FDA-Public Use
  Company Number: US-ELI_LILLY_AND_COMPANY-US201102003187

PATIENT
  Sex: Female

DRUGS (23)
  1. FORTEO [Suspect]
     Dosage: 20 UG, DAILY (1/D)
  2. NEXIUM [Concomitant]
  3. SALSALATE [Concomitant]
  4. PROAIR HFA [Concomitant]
  5. ZYRTEC [Concomitant]
  6. VITAMIN D [Concomitant]
  7. FORTEO [Suspect]
     Dosage: 20 UG, QD
     Dates: end: 20111001
  8. METOPROLOL TARTRATE [Concomitant]
  9. CALTRATE D                         /00944201/ [Concomitant]
  10. FISH OIL [Concomitant]
  11. TYLENOL (CAPLET) [Concomitant]
  12. VITAMIN B NOS [Concomitant]
  13. FORTEO [Suspect]
     Indication: OSTEOPOROSIS
     Dosage: 20 UG, DAILY (1/D)
     Dates: start: 20101015
  14. ORPHENADRINE CITRATE [Concomitant]
  15. PRAZOSIN HYDROCHLORIDE [Concomitant]
  16. BENADRYL [Concomitant]
  17. PATADAY [Concomitant]
     Indication: EYE DISORDER
  18. LIPITOR [Concomitant]
  19. FOLIC ACID [Concomitant]
  20. FLOVENT HFA [Concomitant]
  21. LUMIGAN [Concomitant]
     Indication: EYE DISORDER
  22. MULTI-VITAMINS [Concomitant]
  23. LIDODERM [Concomitant]

REACTIONS (4)
  - BONE DENSITY DECREASED [None]
  - CRYING [None]
  - FALL [None]
  - TENDON INJURY [None]
